FAERS Safety Report 12587120 (Version 13)
Quarter: 2017Q2

REPORT INFORMATION
  Report Type: Report from Study
  Country: IT (occurrence: IT)
  Receive Date: 20160725
  Receipt Date: 20170424
  Transmission Date: 20170830
  Serious: Yes (Death, Hospitalization)
  Sender: FDA-Public Use
  Company Number: IT-ROCHE-1775762

PATIENT
  Age: 69 Year
  Sex: Male
  Weight: 83 kg

DRUGS (24)
  1. 5-FLUOROURACIL [Suspect]
     Active Substance: FLUOROURACIL
     Indication: COLORECTAL CANCER METASTATIC
     Dosage: MOST RECENT DOSE OF PRIOR TO EVENT OF ASTHENIA: 04/MAY/2016, AT 14:45
     Route: 040
     Dates: start: 20160309
  2. OXALIPLATIN. [Suspect]
     Active Substance: OXALIPLATIN
     Route: 042
     Dates: start: 20160601
  3. PREDNISONE. [Concomitant]
     Active Substance: PREDNISONE
     Indication: ASTHENIA
     Route: 065
     Dates: start: 20160613, end: 20160617
  4. 5-FLUOROURACIL [Suspect]
     Active Substance: FLUOROURACIL
     Dosage: MOST RECENT DOSE PRIOR TO SAE (750 MG): 01/JUN/2016 FOLLOWED BY 4540 MG (01/JUN/2016 TO 03/JUN/2016)
     Route: 042
     Dates: start: 20160601, end: 20160603
  5. FOLINIC ACID [Suspect]
     Active Substance: LEUCOVORIN
     Indication: COLORECTAL CANCER METASTATIC
     Dosage: MOST RECENT DOSE OF PRIOR TO EVENT OF ASTHENIA: 04/MAY/2016, AT 14:45
     Route: 042
     Dates: start: 20160309
  6. FOLINIC ACID [Suspect]
     Active Substance: LEUCOVORIN
     Route: 042
     Dates: start: 20160601
  7. FLUCONAZOLE. [Concomitant]
     Active Substance: FLUCONAZOLE
     Route: 065
     Dates: start: 20160614, end: 20160627
  8. RIFAXIMINA [Concomitant]
     Active Substance: RIFAXIMIN
     Indication: DIARRHOEA
     Route: 065
     Dates: start: 20160620, end: 20160701
  9. METOCLOPRAMIDE. [Concomitant]
     Active Substance: METOCLOPRAMIDE
     Indication: NAUSEA
     Route: 065
     Dates: start: 20160525
  10. FILGRASTIM [Concomitant]
     Active Substance: FILGRASTIM
     Route: 065
     Dates: start: 20160613, end: 20160614
  11. BLOOD TRANSFUSION [Concomitant]
     Active Substance: HUMAN RED BLOOD CELL
     Indication: ANAEMIA
     Route: 065
     Dates: start: 20160624, end: 20160624
  12. BEVACIZUMAB [Suspect]
     Active Substance: BEVACIZUMAB
     Indication: COLORECTAL CANCER METASTATIC
     Dosage: MOST RECENT DOSE (360 MG) OF PRIOR TO EVENT OF ASTHENIA: 04/MAY/2016 AT 13:30
     Route: 042
     Dates: start: 20160309
  13. IRBESARTAN. [Concomitant]
     Active Substance: IRBESARTAN
     Indication: HYPERTENSION
     Route: 065
  14. OXALIPLATIN. [Suspect]
     Active Substance: OXALIPLATIN
     Indication: COLORECTAL CANCER METASTATIC
     Dosage: MOST RECENT DOSE OF PRIOR TO EVENT OF ASTHENIA: 04/MAY/2016, AT 14:45
     Route: 042
     Dates: start: 20160309
  15. CIPROFLOXACINE [Concomitant]
     Active Substance: CIPROFLOXACIN
     Route: 065
     Dates: start: 20160406, end: 20160418
  16. FLUCONAZOLE. [Concomitant]
     Active Substance: FLUCONAZOLE
     Indication: NEUTROPENIA
     Route: 065
     Dates: start: 20160613, end: 20160613
  17. CIPROFLOXACINE [Concomitant]
     Active Substance: CIPROFLOXACIN
     Indication: CYSTITIS
     Route: 065
     Dates: start: 20160613, end: 20160620
  18. ENTEROGERMINA [Concomitant]
     Active Substance: BACILLUS SUBTILIS
     Indication: DIARRHOEA
     Route: 065
     Dates: start: 20160613, end: 20160701
  19. BEVACIZUMAB [Suspect]
     Active Substance: BEVACIZUMAB
     Route: 042
     Dates: start: 20160601
  20. AMOXICILLIN/CLAVULANATE [Concomitant]
     Active Substance: AMOXICILLIN\CLAVULANATE POTASSIUM
     Indication: NEUTROPENIA
     Route: 065
     Dates: start: 20160613, end: 20160620
  21. CIPROFLOXACINE [Concomitant]
     Active Substance: CIPROFLOXACIN
     Route: 065
     Dates: start: 20160329, end: 20160404
  22. ENOXAPARIN SODIUM. [Concomitant]
     Active Substance: ENOXAPARIN SODIUM
     Route: 065
     Dates: start: 20160616
  23. GLUCOSE [Concomitant]
     Active Substance: DEXTROSE
     Indication: DIARRHOEA
     Route: 065
     Dates: start: 20160617, end: 20160623
  24. PREDNISONE. [Concomitant]
     Active Substance: PREDNISONE
     Indication: NAUSEA
     Route: 065
     Dates: start: 20160525

REACTIONS (2)
  - Asthenia [Recovered/Resolved]
  - Hemiplegia [Not Recovered/Not Resolved]

NARRATIVE: CASE EVENT DATE: 20160510
